FAERS Safety Report 6408677-6 (Version None)
Quarter: 2009Q4

REPORT INFORMATION
  Report Type: 
  Country: None (occurrence: None)
  Receive Date: 20091019
  Receipt Date: 20091007
  Transmission Date: 20100525
  Serious: Yes (Hospitalization)
  Sender: FDA-Public Use
  Company Number: 230004N09DEU

PATIENT
  Age: 49 Year
  Sex: Male

DRUGS (5)
  1. REBIF [Suspect]
     Indication: MULTIPLE SCLEROSIS
     Dosage: 8.8 MCG, 3 IN 1 WEEKS, SQ; 22 MCG,3 IN 1 WEEKS, SQ; 44 MCG, 3 IN 1 WEEKS, SQ
     Route: 058
     Dates: start: 20081117, end: 20081201
  2. REBIF [Suspect]
     Indication: MULTIPLE SCLEROSIS
     Dosage: 8.8 MCG, 3 IN 1 WEEKS, SQ; 22 MCG,3 IN 1 WEEKS, SQ; 44 MCG, 3 IN 1 WEEKS, SQ
     Route: 058
     Dates: start: 20081202, end: 20081216
  3. REBIF [Suspect]
     Indication: MULTIPLE SCLEROSIS
     Dosage: 8.8 MCG, 3 IN 1 WEEKS, SQ; 22 MCG,3 IN 1 WEEKS, SQ; 44 MCG, 3 IN 1 WEEKS, SQ
     Route: 058
     Dates: start: 20081218, end: 20090202
  4. CYMBALTA [Concomitant]
  5. CITALOPRAM (CITALOPRAM /00582601/) [Concomitant]

REACTIONS (4)
  - ABDOMINAL PAIN UPPER [None]
  - HEPATIC STEATOSIS [None]
  - INTRA-ABDOMINAL PRESSURE INCREASED [None]
  - TRANSAMINASES INCREASED [None]
